FAERS Safety Report 9055605 (Version 1)
Quarter: 2013Q1

REPORT INFORMATION
  Report Type: Spontaneous
  Country: FR (occurrence: FR)
  Receive Date: 20130206
  Receipt Date: 20130206
  Transmission Date: 20140127
  Serious: Yes (Hospitalization, Other)
  Sender: FDA-Public Use
  Company Number: FR-ELI_LILLY_AND_COMPANY-FR201301010456

PATIENT
  Age: 66 Year
  Sex: Male

DRUGS (4)
  1. ALIMTA [Suspect]
     Indication: LUNG ADENOCARCINOMA RECURRENT
     Dosage: 1100 MG, UNK
     Route: 042
     Dates: start: 20121030
  2. CARBOPLATIN [Concomitant]
     Indication: LUNG ADENOCARCINOMA RECURRENT
     Dosage: 800 MG, UNK
     Route: 042
  3. SPECIAFOLDINE [Concomitant]
     Indication: VITAMIN D DEFICIENCY
     Dosage: 0.4 UNK, UNK
     Route: 048
  4. TARKA [Concomitant]

REACTIONS (3)
  - Ventricular tachycardia [Recovered/Resolved]
  - Renal failure chronic [Unknown]
  - Off label use [Unknown]
